FAERS Safety Report 4840834-2 (Version None)
Quarter: 2005Q4

REPORT INFORMATION
  Report Type: 
  Country: None (occurrence: None)
  Receive Date: 20051130
  Receipt Date: 20050617
  Transmission Date: 20060501
  Serious: No
  Sender: FDA-Public Use
  Company Number: US-BRISTOL-MYERS SQUIBB COMPANY-13007430

PATIENT
  Age: 74 Year
  Sex: Female

DRUGS (6)
  1. AVALIDE [Suspect]
     Indication: HYPERTENSION
     Dosage: 150 MG/12.5 MG
  2. ACIPHEX [Concomitant]
  3. ACTONEL [Concomitant]
  4. ASPIRIN [Concomitant]
  5. CALCIUM GLUCONATE [Concomitant]
  6. MULTI-VITAMIN [Concomitant]

REACTIONS (1)
  - DIZZINESS [None]
